FAERS Safety Report 8549598-2 (Version None)
Quarter: 2012Q3

REPORT INFORMATION
  Report Type: 
  Country: None (occurrence: None)
  Receive Date: 20120730
  Receipt Date: 20120724
  Transmission Date: 20120928
  Serious: Yes (Other)
  Sender: FDA-Public Use
  Company Number: US-BAYER-2011-012439

PATIENT
  Age: 64 Year
  Sex: Female
  Weight: 61 kg

DRUGS (3)
  1. HOMEOPATHIC REMEDY FOR RESTLESS LEG SYNDROM [Concomitant]
  2. ALKA-SELTZER PLUS NIGHT COLD [Suspect]
     Indication: SEASONAL ALLERGY
     Dosage: 2 DF, PRN
     Dates: start: 20120703
  3. PERCOGESIC [Concomitant]

REACTIONS (2)
  - DYSKINESIA [None]
  - NEPHROPATHY [None]
